FAERS Safety Report 6511658-5 (Version None)
Quarter: 2009Q4

REPORT INFORMATION
  Report Type: 
  Country: None (occurrence: None)
  Receive Date: 20091222
  Receipt Date: 20090506
  Transmission Date: 20100525
  Serious: No
  Sender: FDA-Public Use
  Company Number: US-ASTRAZENECA-2009UW11542

PATIENT
  Sex: Female
  Weight: 70.3 kg

DRUGS (4)
  1. CRESTOR [Suspect]
     Indication: BLOOD CHOLESTEROL INCREASED
     Route: 048
     Dates: start: 20090301
  2. CALCIUM [Concomitant]
  3. FISH OIL [Concomitant]
  4. CELEBREX [Concomitant]

REACTIONS (5)
  - ABDOMINAL DISTENSION [None]
  - ABDOMINAL PAIN UPPER [None]
  - DIARRHOEA [None]
  - IRRITABLE BOWEL SYNDROME [None]
  - MUSCULAR WEAKNESS [None]
